FAERS Safety Report 10248526 (Version 1)
Quarter: 2014Q2

REPORT INFORMATION
  Report Type: Spontaneous
  Country: US (occurrence: None)
  Receive Date: 20140617
  Receipt Date: 20140617
  Transmission Date: 20141212
  Serious: Yes (Hospitalization, Other)
  Sender: FDA-Public Use
  Company Number: None

PATIENT
  Age: 25 Year
  Sex: Female

DRUGS (4)
  1. NUCYNTA ER [Suspect]
     Indication: PAIN
     Dosage: 1 TID ORAL
     Route: 048
     Dates: start: 20140608, end: 20140610
  2. NUCYNTA ER [Suspect]
     Indication: FIBROMYALGIA
     Dosage: 1 TID ORAL
     Route: 048
     Dates: start: 20140608, end: 20140610
  3. DULOXETINE [Concomitant]
  4. TAPENTADOL [Concomitant]

REACTIONS (5)
  - Serotonin syndrome [None]
  - Clonus [None]
  - Tachycardia [None]
  - Hyperthermia [None]
  - Agitation [None]
